FAERS Safety Report 5368241-7 (Version None)
Quarter: 2007Q2

REPORT INFORMATION
  Report Type: 
  Country: None (occurrence: None)
  Receive Date: 20070622
  Receipt Date: 20070622
  Transmission Date: 20071010
  Serious: Yes (Other)
  Sender: FDA-Public Use
  Company Number: None

PATIENT
  Age: 25 Year
  Sex: Male
  Weight: 68.0396 kg

DRUGS (1)
  1. WHITING PRE-BRUSH RINSE    LISTERINE [Suspect]
     Indication: DENTAL COSMETIC PROCEDURE
     Dosage: 15ML BID PO
     Route: 048
     Dates: start: 20070619, end: 20070620

REACTIONS (3)
  - GINGIVAL PAIN [None]
  - HYPOGEUSIA [None]
  - ORAL MUCOSAL EXFOLIATION [None]
